FAERS Safety Report 20667269 (Version 6)
Quarter: 2022Q2

REPORT INFORMATION
  Report Type: Report from Study
  Country: US (occurrence: US)
  Receive Date: 20220404
  Receipt Date: 20220525
  Transmission Date: 20220721
  Serious: Yes (Other)
  Sender: FDA-Public Use
  Company Number: US-NOVARTISTESTPH-NVSC2022US072747

PATIENT
  Sex: Female
  Weight: 73.016 kg

DRUGS (5)
  1. TREPROSTINIL [Suspect]
     Active Substance: TREPROSTINIL
     Indication: Pulmonary arterial hypertension
     Dosage: 22.5 NG/KG/MIN, CONT (CONCENTRATION: 5 MG/ML)
     Route: 058
     Dates: start: 20220323
  2. TREPROSTINIL [Suspect]
     Active Substance: TREPROSTINIL
     Dosage: 21 NG/KG/MIN, CONT (CONCENTRATION: 2.5 MG/ML)
     Route: 058
  3. TREPROSTINIL [Suspect]
     Active Substance: TREPROSTINIL
     Dosage: UNK (25 NG/KG/MIN)
     Route: 058
     Dates: start: 20220323
  4. TREPROSTINIL [Suspect]
     Active Substance: TREPROSTINIL
     Dosage: 33 NG/KG/MIN, CONT (CONCENTRATION: 5 MG/ML)
     Route: 058
     Dates: start: 20220323
  5. OPSUMIT [Concomitant]
     Active Substance: MACITENTAN
     Indication: Product used for unknown indication
     Dosage: UNK
     Route: 065

REACTIONS (11)
  - Cellulitis [Unknown]
  - Chills [Unknown]
  - Rash [Unknown]
  - Drug intolerance [Unknown]
  - Dermatitis contact [Unknown]
  - Back pain [Unknown]
  - Chest discomfort [Unknown]
  - Headache [Unknown]
  - Pain in jaw [Unknown]
  - Infusion site pain [Unknown]
  - Injection site pain [Unknown]
